FAERS Safety Report 14273583 (Version 4)
Quarter: 2020Q2

REPORT INFORMATION
  Report Type: Spontaneous
  Country: US (occurrence: US)
  Receive Date: 20171212
  Receipt Date: 20200427
  Transmission Date: 20200713
  Serious: Yes (Other)
  Sender: FDA-Public Use
  Company Number: US-ELI_LILLY_AND_COMPANY-US201712003199

PATIENT
  Age: 61 Year
  Sex: Male

DRUGS (15)
  1. VIAGRA [Suspect]
     Active Substance: SILDENAFIL CITRATE
     Dosage: 20 MG, WEEKLY (1/W)
     Route: 048
     Dates: start: 20160725, end: 20170124
  2. PRAVASTATIN. [Concomitant]
     Active Substance: PRAVASTATIN
     Indication: BLOOD CHOLESTEROL INCREASED
     Dosage: UNK, UNKNOWN
     Route: 065
     Dates: start: 2013, end: 2014
  3. FUROSEMIDE. [Concomitant]
     Active Substance: FUROSEMIDE
     Indication: FLUID RETENTION
     Dosage: UNK, UNKNOWN
     Route: 065
     Dates: start: 2015, end: 2015
  4. CIALIS [Suspect]
     Active Substance: TADALAFIL
     Indication: ERECTILE DYSFUNCTION
     Dosage: 5 MG FIVE TIMES A WEEK
     Route: 048
     Dates: start: 20130912, end: 20150323
  5. VIAGRA [Suspect]
     Active Substance: SILDENAFIL CITRATE
     Indication: ERECTILE DYSFUNCTION
     Dosage: 50 MG, WEEKLY (1/W)
     Route: 048
     Dates: start: 201208, end: 201208
  6. DICLOFENAC [Concomitant]
     Active Substance: DICLOFENAC
     Indication: ARTHRITIS
     Dosage: UNK, UNKNOWN
     Route: 065
     Dates: start: 2014, end: 2017
  7. ERYTHROMYCIN. [Concomitant]
     Active Substance: ERYTHROMYCIN
     Indication: INFECTION
     Dosage: UNK, UNKNOWN
     Route: 065
     Dates: start: 2015, end: 2015
  8. GLIMEPIRIDE. [Concomitant]
     Active Substance: GLIMEPIRIDE
     Indication: DIABETES MELLITUS
     Dosage: UNK, UNKNOWN
     Route: 065
     Dates: start: 2013, end: 2015
  9. TRAMADOL HCL [Concomitant]
     Active Substance: TRAMADOL HYDROCHLORIDE
     Indication: PAIN
     Dosage: UNK, UNKNOWN
     Route: 065
     Dates: start: 2014, end: 2014
  10. NEOMYCIN. [Concomitant]
     Active Substance: NEOMYCIN
     Indication: INFECTION
     Dosage: UNK, UNKNOWN
     Route: 065
     Dates: start: 2015, end: 2015
  11. LISINOPRIL AND HYDROCHLOROTHIAZIDE [Concomitant]
     Active Substance: HYDROCHLOROTHIAZIDE\LISINOPRIL
     Indication: HYPERTENSION
     Dosage: UNK, UNKNOWN
     Route: 065
     Dates: start: 2013
  12. AMOXICILLIN AND CLAVULANATE POTASSIUM [Concomitant]
     Active Substance: AMOXICILLIN\CLAVULANATE POTASSIUM
     Indication: INFECTION
     Dosage: UNK, UNKNOWN
     Route: 065
     Dates: start: 2015, end: 2015
  13. CIPROFLOXACIN. [Concomitant]
     Active Substance: CIPROFLOXACIN
     Indication: INFECTION
     Dosage: UNK, UNKNOWN
     Route: 065
     Dates: start: 2015, end: 2015
  14. METOCLOPRAMIDE. [Concomitant]
     Active Substance: METOCLOPRAMIDE
     Indication: CONSTIPATION
     Dosage: UNK, UNKNOWN
     Route: 065
     Dates: start: 2015, end: 2015
  15. AZITHROMYCIN ANHYDROUS. [Concomitant]
     Active Substance: AZITHROMYCIN ANHYDROUS
     Indication: INFECTION
     Dosage: UNK, UNKNOWN
     Route: 065
     Dates: start: 2014, end: 2015

REACTIONS (3)
  - Prostate cancer [Recovered/Resolved]
  - Malignant melanoma in situ [Unknown]
  - Malignant melanoma in situ [Unknown]

NARRATIVE: CASE EVENT DATE: 2015
